FAERS Safety Report 10739634 (Version 1)
Quarter: 2015Q1

REPORT INFORMATION
  Report Type: Spontaneous
  Country: US (occurrence: US)
  Receive Date: 20150126
  Receipt Date: 20150126
  Transmission Date: 20150721
  Serious: Yes (Hospitalization, Other)
  Sender: FDA-Public Use
  Company Number: US-JNJFOC-20150111266

PATIENT
  Age: 23 Year
  Sex: Male
  Weight: 72.58 kg

DRUGS (2)
  1. PARACETAMOL [Suspect]
     Active Substance: ACETAMINOPHEN
     Route: 048
  2. PARACETAMOL [Suspect]
     Active Substance: ACETAMINOPHEN
     Indication: PRODUCT USED FOR UNKNOWN INDICATION
     Dosage: EVERY 4-6 HOURS
     Route: 048
     Dates: start: 20070218

REACTIONS (5)
  - Nausea [Unknown]
  - Transaminases increased [Recovering/Resolving]
  - Abdominal pain [Recovered/Resolved]
  - Pyrexia [Unknown]
  - Accidental overdose [Recovering/Resolving]

NARRATIVE: CASE EVENT DATE: 20070218
